FAERS Safety Report 25416586 (Version 1)
Quarter: 2025Q2

REPORT INFORMATION
  Report Type: Spontaneous
  Country: DE (occurrence: DE)
  Receive Date: 20250610
  Receipt Date: 20250610
  Transmission Date: 20250716
  Serious: Yes (Hospitalization)
  Sender: AMGEN
  Company Number: DE-ROCHE-10000293344

PATIENT
  Age: 71 Year
  Sex: Male

DRUGS (2)
  1. BEVACIZUMAB [Suspect]
     Active Substance: BEVACIZUMAB
     Indication: Hepatocellular carcinoma
     Dosage: LINE 1DATE OF LAST APPLICATION PRIOR EVENT 1155 MG ON 24-APR-2025
     Route: 065
     Dates: start: 20250313
  2. ATEZOLIZUMAB [Suspect]
     Active Substance: ATEZOLIZUMAB
     Indication: Hepatocellular carcinoma
     Dosage: LINE 1DATE OF LAST APPLICATION PRIOR EVENT 1200 MG ON 24-APR-2025
     Route: 065
     Dates: start: 20250313

REACTIONS (3)
  - Vertigo [Unknown]
  - Cognitive disorder [Unknown]
  - Off label use [Unknown]

NARRATIVE: CASE EVENT DATE: 20250313
